FAERS Safety Report 6056591-0 (Version None)
Quarter: 2009Q1

REPORT INFORMATION
  Report Type: 
  Country: None (occurrence: None)
  Receive Date: 20090126
  Receipt Date: 20090112
  Transmission Date: 20090719
  Serious: Yes (Death)
  Sender: FDA-Public Use
  Company Number: KV200900071

PATIENT
  Age: 38 Year
  Sex: Female

DRUGS (2)
  1. MORPHINE SULFATE [Suspect]
     Indication: BACK PAIN
     Dosage: 30 MG, QD, ORAL
     Route: 048
     Dates: start: 20081105, end: 20081108
  2. NUMEROUS UNSPECIFIED MEDICATIONS [Concomitant]

REACTIONS (3)
  - CYANOSIS [None]
  - PRODUCT QUALITY ISSUE [None]
  - RESPIRATORY DISORDER [None]
